FAERS Safety Report 5195414-9 (Version None)
Quarter: 2006Q4

REPORT INFORMATION
  Report Type: 
  Country: None (occurrence: None)
  Receive Date: 20061229
  Receipt Date: 20061221
  Transmission Date: 20070319
  Serious: Yes (Other)
  Sender: FDA-Public Use
  Company Number: US-PFIZER INC-2006155677

PATIENT
  Sex: Female
  Weight: 108.9 kg

DRUGS (6)
  1. SERTRALINE [Suspect]
     Indication: DEPRESSION
     Route: 048
  2. INDOCIN [Suspect]
     Indication: GOUT
     Dates: start: 20061215
  3. METFORMIN HCL [Concomitant]
  4. INSULIN [Concomitant]
  5. COZAAR [Concomitant]
  6. LOPID [Concomitant]

REACTIONS (5)
  - BLOOD CHOLESTEROL INCREASED [None]
  - DRUG EFFECT DECREASED [None]
  - FLAT AFFECT [None]
  - GOUT [None]
  - RENAL IMPAIRMENT [None]
